FAERS Safety Report 6509008-3 (Version None)
Quarter: 2009Q4

REPORT INFORMATION
  Report Type: 
  Country: None (occurrence: None)
  Receive Date: 20091221
  Receipt Date: 20090914
  Transmission Date: 20100525
  Serious: No
  Sender: FDA-Public Use
  Company Number: US-ASTRAZENECA-2009SE12996

PATIENT
  Age: 21865 Day
  Sex: Female
  Weight: 59 kg

DRUGS (4)
  1. CRESTOR [Suspect]
     Route: 048
     Dates: start: 20090903
  2. CRESTOR [Suspect]
     Route: 048
     Dates: start: 20090905, end: 20090910
  3. SYNTHROID [Concomitant]
     Indication: THYROIDECTOMY
  4. FOSAMAX [Concomitant]
     Indication: OSTEOPOROSIS

REACTIONS (5)
  - ABDOMINAL PAIN UPPER [None]
  - HEADACHE [None]
  - HEART RATE INCREASED [None]
  - NAUSEA [None]
  - VOMITING [None]
